FAERS Safety Report 5515029-X (Version None)
Quarter: 2007Q4

REPORT INFORMATION
  Report Type: 
  Country: None (occurrence: None)
  Receive Date: 20071113
  Receipt Date: 20061121
  Transmission Date: 20080405
  Serious: No
  Sender: FDA-Public Use
  Company Number: A0628316A

PATIENT
  Age: 53 Year
  Sex: Female

DRUGS (13)
  1. COREG [Suspect]
     Dosage: 6.25MG TWICE PER DAY
     Route: 048
     Dates: start: 20060201
  2. CARTIA XT [Concomitant]
  3. COLCHICINE [Concomitant]
  4. FUROSEMIDE [Concomitant]
  5. DOXAZOSIN MESYLATE [Concomitant]
  6. ALTACE [Concomitant]
  7. PREVACID [Concomitant]
  8. DIOVAN [Concomitant]
  9. ALLOPURINOL [Concomitant]
  10. SPIRONOLACTONE [Concomitant]
  11. SINGULAIR [Concomitant]
  12. ATRIPLA [Concomitant]
  13. LUMIGAN [Concomitant]

REACTIONS (3)
  - DIZZINESS [None]
  - DYSPNOEA [None]
  - FATIGUE [None]
